FAERS Safety Report 10272923 (Version 1)
Quarter: 2014Q2

REPORT INFORMATION
  Report Type: Spontaneous
  Country: US (occurrence: None)
  Receive Date: 20140627
  Receipt Date: 20140627
  Transmission Date: 20141212
  Serious: Yes (Hospitalization)
  Sender: FDA-Public Use
  Company Number: None

PATIENT
  Age: 65 Year
  Sex: Female
  Weight: 104.33 kg

DRUGS (22)
  1. PIOGLITAZONE [Suspect]
  2. T.E.D. ANTI-EMBOLISM STOCKING [Concomitant]
  3. NUT.TX.GLUC.INTOL, LAC-FREE, SOY (GLUCERNA ADVANCE) [Concomitant]
  4. CYCLOBENZAPRINE (FLEXERIL) [Concomitant]
  5. PIOGLITAZONE (ACTOS) [Concomitant]
  6. CYANOCOBALAMIN [Concomitant]
  7. OXYBUTYNIN (DITROPAN) [Concomitant]
  8. ISOSORBIDE MONONITRATE (IMDUR) [Concomitant]
  9. SITAGLIPTIN (JANUVIA) [Concomitant]
  10. CARVEDILOL (COREG) [Concomitant]
  11. ESOMEPRAZOLE (NEXIUM) [Concomitant]
  12. SODIUM BICARBONATE [Concomitant]
  13. ASPIRIN [Concomitant]
  14. MICONAZOLE (MICOTIN) [Concomitant]
  15. CARBAMIDE PEROXIDE (DEBROX) [Concomitant]
  16. BUMETANIDE (BUMEX) [Concomitant]
  17. LOSARTAN (COZAAR) [Concomitant]
  18. ACETAMINOPHEN (TYLENOL) [Concomitant]
  19. CALCIUM CARBONATE [Concomitant]
  20. GABAPENTIN (NEURONTIN) [Concomitant]
  21. OXYCODONE-ACETAMINOPHEN (PERCOCET) [Concomitant]
  22. ALBUTEROL (ALBUTEROL) [Concomitant]

REACTIONS (2)
  - Cardiac failure congestive [None]
  - Condition aggravated [None]
